FAERS Safety Report 14694056 (Version 4)
Quarter: 2021Q3

REPORT INFORMATION
  Report Type: Spontaneous
  Country: US (occurrence: US)
  Receive Date: 20180329
  Receipt Date: 20210723
  Transmission Date: 20211014
  Serious: Yes (Hospitalization)
  Sender: FDA-Public Use
  Company Number: US-PFIZER INC-2018126651

PATIENT
  Age: 61 Year
  Sex: Female
  Weight: 100 kg

DRUGS (12)
  1. CYCLOBENZAPRIN [Concomitant]
     Active Substance: CYCLOBENZAPRINE
     Dosage: 10MG; TAKE 1 OR 2 BEDTIME
  2. MONTELUKAST [Concomitant]
     Active Substance: MONTELUKAST SODIUM
     Dosage: 10 MG
  3. ORENCIA [Concomitant]
     Active Substance: ABATACEPT
     Dosage: INFUSION 1?MONTH
  4. METHOTREXATE SODIUM. [Suspect]
     Active Substance: METHOTREXATE SODIUM
     Dosage: 7 MG, ONCE DAILY
  5. LISINOPRIL AND HYDROCHLOROTHIAZIDE [Concomitant]
     Active Substance: HYDROCHLOROTHIAZIDE\LISINOPRIL
     Dosage: 20?25; TAKE?2
  6. METHOTREXATE SODIUM. [Suspect]
     Active Substance: METHOTREXATE SODIUM
     Indication: RHEUMATOID ARTHRITIS
     Dosage: 49 MG, WEEKLY (TAKE 7 PILLS AT THE SAME TIME ONCE PER WEEK)
     Dates: end: 201704
  7. BREO ELLIPTA [Concomitant]
     Active Substance: FLUTICASONE FUROATE\VILANTEROL TRIFENATATE
     Dosage: 100MG, 25MCG
  8. OMEPRAZOLE. [Concomitant]
     Active Substance: OMEPRAZOLE
     Dosage: 20 MG, (1CAPSULE)
  9. ALIVE [Concomitant]
     Active Substance: BENZALKONIUM CHLORIDE\SODIUM CHLORIDE
     Dosage: 880 MG, DAILY (2?MORNING, 2 NIGHT)
  10. XELJANZ XR [Suspect]
     Active Substance: TOFACITINIB CITRATE
     Indication: RHEUMATOID ARTHRITIS
     Dosage: 11 MG, ONCE DAILY
     Route: 048
     Dates: start: 20170421
  11. XELJANZ XR [Suspect]
     Active Substance: TOFACITINIB CITRATE
     Dosage: 11 MG, DAILY (UP TO 1 TABLET PER DAY)
  12. CITALOPRAM [Concomitant]
     Active Substance: CITALOPRAM HYDROBROMIDE
     Dosage: 40 MG

REACTIONS (10)
  - Asthma [Not Recovered/Not Resolved]
  - Influenza [Recovered/Resolved]
  - Chest discomfort [Recovered/Resolved]
  - Breast pain [Recovered/Resolved]
  - Pain [Unknown]
  - Lung disorder [Recovered/Resolved]
  - Chest pain [Not Recovered/Not Resolved]
  - Productive cough [Unknown]
  - Disease progression [Unknown]
  - Nasopharyngitis [Recovered/Resolved]

NARRATIVE: CASE EVENT DATE: 201712
